FAERS Safety Report 7117910-7 (Version None)
Quarter: 2010Q4

REPORT INFORMATION
  Report Type: 
  Country: None (occurrence: None)
  Receive Date: 20101118
  Receipt Date: 20101118
  Transmission Date: 20110411
  Serious: Yes (Other)
  Sender: FDA-Public Use
  Company Number: None

PATIENT
  Age: 48 Year
  Sex: Female
  Weight: 64.4108 kg

DRUGS (1)
  1. ZYPREXA [Suspect]
     Indication: STRESS
     Dosage: ONE TABLET AT NIGHT PO
     Route: 048
     Dates: start: 20101112, end: 20101116

REACTIONS (9)
  - AGITATION [None]
  - DRY MOUTH [None]
  - HEART RATE INCREASED [None]
  - PARAESTHESIA [None]
  - RESTLESS LEGS SYNDROME [None]
  - RESTLESSNESS [None]
  - SOMNOLENCE [None]
  - TREMOR [None]
  - VERTIGO [None]
